FAERS Safety Report 11048332 (Version 1)
Quarter: 2015Q2

REPORT INFORMATION
  Report Type: Spontaneous
  Country: CN (occurrence: CN)
  Receive Date: 20150420
  Receipt Date: 20150420
  Transmission Date: 20150821
  Serious: Yes (Hospitalization)
  Sender: FDA-Public Use
  Company Number: CN-PFIZER INC-2015132563

PATIENT
  Age: 41 Year
  Sex: Male
  Weight: 90 kg

DRUGS (4)
  1. FRAGMIN [Suspect]
     Active Substance: DALTEPARIN SODIUM
     Indication: PULMONARY EMBOLISM
     Dosage: 5000 IU, 2X/DAY
     Route: 058
     Dates: start: 20140815, end: 20140826
  2. WARFARIN SODIUM. [Concomitant]
     Active Substance: WARFARIN SODIUM
     Indication: PULMONARY EMBOLISM
     Dosage: 2.5 MG, 1X/DAY
     Route: 048
     Dates: start: 20140815, end: 20140818
  3. PANTOPRAZOLE SODIUM [Concomitant]
     Indication: STRESS ULCER
     Dosage: 40 MG, 1X/DAY
     Route: 041
     Dates: start: 20140815, end: 20140821
  4. WARFARIN SODIUM. [Concomitant]
     Active Substance: WARFARIN SODIUM
     Dosage: 3.75 MG, 1X/DAY
     Route: 048
     Dates: start: 20140818, end: 20140821

REACTIONS (1)
  - Drug-induced liver injury [Recovering/Resolving]

NARRATIVE: CASE EVENT DATE: 20140821
